FAERS Safety Report 9648081 (Version 3)
Quarter: 2013Q4

REPORT INFORMATION
  Report Type: Spontaneous
  Country: US (occurrence: US)
  Receive Date: 20131028
  Receipt Date: 20131205
  Transmission Date: 20140711
  Serious: Yes (Hospitalization, Other)
  Sender: FDA-Public Use
  Company Number: US-JNJFOC-20130808582

PATIENT
  Age: 41 Year
  Sex: Male
  Weight: 68.04 kg

DRUGS (3)
  1. STELARA [Suspect]
     Indication: PSORIASIS
     Route: 058
     Dates: start: 20130128, end: 20130814
  2. CLARITIN [Concomitant]
     Route: 048
  3. BENADRYL [Concomitant]
     Route: 048

REACTIONS (1)
  - Staphylococcal infection [Recovered/Resolved]
